FAERS Safety Report 4546352-3 (Version None)
Quarter: 2005Q1

REPORT INFORMATION
  Report Type: 
  Country: None (occurrence: None)
  Receive Date: 20050103
  Receipt Date: 20041222
  Transmission Date: 20050727
  Serious: Yes (Disabling, Other)
  Sender: FDA-Public Use
  Company Number: 2004118874

PATIENT
  Age: 73 Year
  Sex: Female

DRUGS (8)
  1. ACCUPRIL [Suspect]
     Indication: HYPERTENSION
     Dosage: 40 MG  (40 MG, 1 IN 1 D), ORAL
     Route: 048
  2. NORVASC [Suspect]
     Indication: HYPERTENSION
     Dosage: 5 MG (5 MG, 1 IN 1 D), ORAL
     Route: 048
  3. ARTHROTEC [Suspect]
     Indication: CONDITION AGGRAVATED
     Dosage: ORAL
     Route: 048
  4. ARTHROTEC [Suspect]
     Indication: OSTEOARTHRITIS
     Dosage: ORAL
     Route: 048
  5. ATENOLOL [Suspect]
     Indication: HYPERTENSION
  6. CODEINE PHOSPHATE AND ACETAMINOPHEN [Concomitant]
  7. POTASSIUM (POTASSIUM) [Concomitant]
  8. CALCIUM (CALCIUM) [Concomitant]

REACTIONS (19)
  - ACTIVITIES OF DAILY LIVING IMPAIRED [None]
  - ASTHENIA [None]
  - BEDRIDDEN [None]
  - BODY HEIGHT DECREASED [None]
  - CARDIAC FIBRILLATION [None]
  - CONDITION AGGRAVATED [None]
  - DYSPNOEA [None]
  - FATIGUE [None]
  - IMPAIRED DRIVING ABILITY [None]
  - JOINT DISLOCATION [None]
  - MUSCLE SPASMS [None]
  - MUSCULAR WEAKNESS [None]
  - MYALGIA [None]
  - OSTEOARTHRITIS [None]
  - PAIN [None]
  - PALPITATIONS [None]
  - POST POLIO SYNDROME [None]
  - POSTURE ABNORMAL [None]
  - TREATMENT NONCOMPLIANCE [None]
